FAERS Safety Report 8501184-6 (Version None)
Quarter: 2012Q3

REPORT INFORMATION
  Report Type: 
  Country: None (occurrence: None)
  Receive Date: 20120710
  Receipt Date: 20120703
  Transmission Date: 20120928
  Serious: Yes (Hospitalization)
  Sender: FDA-Public Use
  Company Number: US-FRI-1000036882

PATIENT
  Age: 66 Year
  Sex: Male

DRUGS (14)
  1. LISINOPRIL [Concomitant]
     Indication: HYPERTENSION
  2. ALBUTEROL [Concomitant]
     Indication: CHRONIC OBSTRUCTIVE PULMONARY DISEASE
  3. JAYLN [Concomitant]
  4. METOPROLOL SUCCINATE [Concomitant]
     Indication: HYPERTENSION
  5. CARDIZEM [Concomitant]
  6. DUONEB [Concomitant]
     Indication: CHRONIC OBSTRUCTIVE PULMONARY DISEASE
  7. ADVAIR DISKUS 100/50 [Concomitant]
     Indication: CHRONIC OBSTRUCTIVE PULMONARY DISEASE
  8. COUMADIN [Concomitant]
  9. DALIRESP [Suspect]
     Indication: CHRONIC OBSTRUCTIVE PULMONARY DISEASE
     Dosage: 500 MCG
     Route: 048
  10. DALIRESP [Suspect]
     Dosage: 500 MCG
     Route: 048
  11. LASIX [Concomitant]
  12. FLONASE [Concomitant]
  13. PEPCID [Concomitant]
  14. SPIRIVA [Concomitant]
     Indication: CHRONIC OBSTRUCTIVE PULMONARY DISEASE

REACTIONS (3)
  - DIZZINESS [None]
  - TACHYCARDIA [None]
  - FATIGUE [None]
